FAERS Safety Report 7290621-3 (Version None)
Quarter: 2011Q1

REPORT INFORMATION
  Report Type: 
  Country: None (occurrence: None)
  Receive Date: 20110214
  Receipt Date: 20110204
  Transmission Date: 20110831
  Serious: Yes (Other)
  Sender: FDA-Public Use
  Company Number: ES-ASTRAZENECA-2011SE06847

PATIENT
  Sex: Female

DRUGS (1)
  1. FASLODEX [Suspect]
     Indication: BREAST CANCER
     Dosage: 500
     Route: 030
     Dates: start: 20100701

REACTIONS (7)
  - POLYURIA [None]
  - BLOOD CREATININE INCREASED [None]
  - INJECTION SITE INDURATION [None]
  - ASTHENIA [None]
  - INJECTION SITE INFLAMMATION [None]
  - TRANSAMINASES INCREASED [None]
  - INJECTION SITE HAEMATOMA [None]
